FAERS Safety Report 6452783-7 (Version None)
Quarter: 2009Q4

REPORT INFORMATION
  Report Type: 
  Country: None (occurrence: None)
  Receive Date: 20091124
  Receipt Date: 20091113
  Transmission Date: 20100525
  Serious: No
  Sender: FDA-Public Use
  Company Number: US-JNJFOC-20091104820

PATIENT
  Sex: Male
  Weight: 98.88 kg

DRUGS (2)
  1. FENTANYL CITRATE [Suspect]
     Indication: BACK PAIN
     Dosage: NDC#: 0781-7113-55
     Route: 062
     Dates: start: 20091112
  2. FENTANYL CITRATE [Suspect]
     Indication: BACK PAIN
     Route: 062

REACTIONS (3)
  - DRUG INEFFECTIVE [None]
  - DRUG PRESCRIBING ERROR [None]
  - INAPPROPRIATE SCHEDULE OF DRUG ADMINISTRATION [None]
